FAERS Safety Report 6190411-9 (Version None)
Quarter: 2009Q2

REPORT INFORMATION
  Report Type: 
  Country: None (occurrence: None)
  Receive Date: 20090514
  Receipt Date: 20090507
  Transmission Date: 20091009
  Serious: Yes (Other)
  Sender: FDA-Public Use
  Company Number: US-ASTRAZENECA-2009UW11511

PATIENT
  Age: 10 Year
  Sex: Female

DRUGS (4)
  1. BUDESONIDE [Suspect]
     Indication: CROHN'S DISEASE
     Route: 048
     Dates: start: 20070601, end: 20080601
  2. MERCAPTOPURINE [Suspect]
     Indication: CROHN'S DISEASE
     Dosage: 25 MG INCREASED TO 50 MG
     Route: 048
     Dates: start: 20070101, end: 20090201
  3. PENTASA [Concomitant]
     Dosage: 500 MG 2-3 TIMES A DAY
  4. CLONIDINE [Concomitant]

REACTIONS (1)
  - HUMORAL IMMUNE DEFECT [None]
